FAERS Safety Report 8097974-7 (Version None)
Quarter: 2012Q1

REPORT INFORMATION
  Report Type: 
  Country: None (occurrence: None)
  Receive Date: 20120128
  Receipt Date: 20110812
  Transmission Date: 20120608
  Serious: No
  Sender: FDA-Public Use
  Company Number: US-ABBOTT-11P-163-0846740-00

PATIENT
  Sex: Male
  Weight: 50.394 kg

DRUGS (6)
  1. HUMIRA [Suspect]
     Dates: start: 20110801
  2. MERCAPTOPURINE [Concomitant]
     Indication: COLITIS ULCERATIVE
  3. HUMIRA [Suspect]
     Indication: COLITIS ULCERATIVE
     Dates: start: 20110628, end: 20110628
  4. HUMIRA [Suspect]
     Dates: start: 20110712, end: 20110712
  5. HUMIRA [Suspect]
     Dates: start: 20110726, end: 20110801
  6. ASACOL [Concomitant]
     Indication: COLITIS ULCERATIVE

REACTIONS (3)
  - JOINT STIFFNESS [None]
  - PAIN IN EXTREMITY [None]
  - FREQUENT BOWEL MOVEMENTS [None]
